FAERS Safety Report 6240388-2 (Version None)
Quarter: 2009Q2

REPORT INFORMATION
  Report Type: 
  Country: None (occurrence: None)
  Receive Date: 20090623
  Receipt Date: 20080616
  Transmission Date: 20091009
  Serious: No
  Sender: FDA-Public Use
  Company Number: US-ASTRAZENECA-2008UW12126

PATIENT
  Age: 63 Year
  Sex: Female
  Weight: 63.5 kg

DRUGS (22)
  1. PULMICORT-100 [Suspect]
     Indication: ASTHMA
     Dosage: 180 MCG DOSE, 6 PUFFS TWICE A DAY
     Route: 055
  2. PULMICORT-100 [Suspect]
     Indication: CHRONIC OBSTRUCTIVE PULMONARY DISEASE
     Dosage: 180 MCG DOSE, 6 PUFFS TWICE A DAY
     Route: 055
  3. ASPIRIN [Concomitant]
  4. IMDUR [Concomitant]
  5. VYTORIN [Concomitant]
  6. PLAVIX [Concomitant]
  7. APRESOLINE [Concomitant]
  8. DETROL LA [Concomitant]
  9. SEREVENT [Concomitant]
  10. DISCUS [Concomitant]
  11. SINGULAIR [Concomitant]
  12. SPIRIVA [Concomitant]
  13. THEOPHYLLINE [Concomitant]
  14. XOPENEX [Concomitant]
  15. WELLBUTRIN [Concomitant]
  16. CYMBALTA [Concomitant]
  17. PRIMIDONE [Concomitant]
  18. PROTONIX [Concomitant]
  19. TOPROL-XL [Concomitant]
     Route: 048
  20. PROCARDIA XL [Concomitant]
  21. CALCIUM WITH D [Concomitant]
  22. MULTI-VITAMIN [Concomitant]

REACTIONS (2)
  - CONTUSION [None]
  - HAEMORRHAGE [None]
